FAERS Safety Report 15474574 (Version 1)
Quarter: 2018Q4

REPORT INFORMATION
  Report Type: Spontaneous
  Country: GB (occurrence: GB)
  Receive Date: 20181008
  Receipt Date: 20181008
  Transmission Date: 20190205
  Serious: Yes (Death)
  Sender: FDA-Public Use
  Company Number: GB-MYLANLABS-2018M1071912

PATIENT
  Age: 34 Year
  Sex: Female

DRUGS (1)
  1. TEMOZOLOMIDE. [Suspect]
     Active Substance: TEMOZOLOMIDE
     Indication: ANAPLASTIC OLIGODENDROGLIOMA
     Dosage: THE WOMAN RECEIVED 6 CYCLES OF TEMOZOLOMIDE.
     Route: 065

REACTIONS (1)
  - Extraskeletal osteosarcoma metastatic [Fatal]
